FAERS Safety Report 24597479 (Version 1)
Quarter: 2024Q4

REPORT INFORMATION
  Report Type: Spontaneous
  Country: US (occurrence: US)
  Receive Date: 20241110
  Receipt Date: 20241110
  Transmission Date: 20250114
  Serious: No
  Sender: SANOFI AVENTIS
  Company Number: US-SA-2024SA309857

PATIENT
  Age: 29 Year
  Sex: Male
  Weight: 95.25 kg

DRUGS (2)
  1. DUPIXENT [Suspect]
     Active Substance: DUPILUMAB
     Indication: Asthma
     Dosage: 300 MG, QOW
     Route: 058
     Dates: start: 20240717
  2. EMTRICITABINE/TENOFOVIR DISOPROXIL [EMTRICITABINE;TENOFOVIR DISOPROXIL [Concomitant]

REACTIONS (2)
  - Middle insomnia [Not Recovered/Not Resolved]
  - Drug ineffective [Unknown]

NARRATIVE: CASE EVENT DATE: 20240101
